FAERS Safety Report 4870569-1 (Version None)
Quarter: 2006Q1

REPORT INFORMATION
  Report Type: 
  Country: None (occurrence: None)
  Receive Date: 20060103
  Receipt Date: 20051222
  Transmission Date: 20060701
  Serious: Yes (Hospitalization)
  Sender: FDA-Public Use
  Company Number: FR-AVENTIS-200514279FR

PATIENT
  Age: 78 Year
  Sex: Male
  Weight: 93 kg

DRUGS (2)
  1. LASILIX [Suspect]
     Indication: OEDEMA PERIPHERAL
     Route: 048
     Dates: start: 20051005, end: 20051106
  2. ALDACTONE [Suspect]
     Indication: OEDEMA PERIPHERAL
     Route: 048
     Dates: start: 20051005, end: 20051106

REACTIONS (3)
  - DEHYDRATION [None]
  - ENCEPHALOPATHY [None]
  - HYPOKALAEMIA [None]
